FAERS Safety Report 10175290 (Version 1)
Quarter: 2014Q2

REPORT INFORMATION
  Report Type: Spontaneous
  Country: US (occurrence: US)
  Receive Date: 20140515
  Receipt Date: 20140515
  Transmission Date: 20141212
  Serious: No
  Sender: FDA-Public Use
  Company Number: US-VIVUS-2014V1000139

PATIENT
  Age: 50 Year
  Sex: Female
  Weight: 118.95 kg

DRUGS (7)
  1. QSYMIA 3.75MG/23MG [Suspect]
     Indication: WEIGHT DECREASED
     Route: 048
     Dates: start: 201311
  2. QSYMIA 7.5MG/46MG [Suspect]
     Indication: WEIGHT DECREASED
     Route: 048
     Dates: start: 201312, end: 201312
  3. QSYMIA 7.5MG/46MG [Suspect]
     Route: 048
     Dates: start: 201402, end: 201402
  4. DIOVAN [Concomitant]
     Indication: HYPERTENSION
     Route: 048
     Dates: start: 2013
  5. VITAMIN D2 [Concomitant]
     Indication: VITAMIN D DEFICIENCY
     Route: 048
     Dates: start: 201403
  6. SPIRONOLACTONE [Concomitant]
     Indication: HAIR GROWTH ABNORMAL
     Route: 048
     Dates: start: 201402
  7. KLONOPIN [Concomitant]
     Indication: ANXIETY
     Route: 048
     Dates: start: 1996

REACTIONS (12)
  - Hyperhidrosis [Recovered/Resolved]
  - Night sweats [Recovered/Resolved]
  - Pyrexia [Recovered/Resolved]
  - Chest pain [Recovered/Resolved]
  - Heart rate increased [Recovered/Resolved]
  - Insomnia [Recovered/Resolved]
  - Muscle spasms [Recovered/Resolved]
  - Feeling abnormal [Recovered/Resolved]
  - Dizziness [Recovered/Resolved]
  - Dry mouth [Recovered/Resolved]
  - Chest discomfort [Recovered/Resolved]
  - Palpitations [Recovered/Resolved]
